FAERS Safety Report 5878725-0 (Version None)
Quarter: 2008Q3

REPORT INFORMATION
  Report Type: 
  Country: None (occurrence: None)
  Receive Date: 20080910
  Receipt Date: 20080904
  Transmission Date: 20090109
  Serious: Yes (Other)
  Sender: FDA-Public Use
  Company Number: TAP2008Q00820

PATIENT
  Age: 80 Year
  Sex: Female
  Weight: 65.9 kg

DRUGS (5)
  1. PREVACID [Suspect]
     Indication: GASTROOESOPHAGEAL REFLUX DISEASE
     Dosage: 60 MG (30 MG, 2 IN 1 D), PER ORAL
     Route: 048
  2. FLUOXETINE [Concomitant]
  3. DILTIAZEM [Concomitant]
  4. CRESTOR [Concomitant]
  5. ATACAND [Concomitant]

REACTIONS (8)
  - ANXIETY [None]
  - EAR INFECTION [None]
  - HEARING IMPAIRED [None]
  - HEART RATE INCREASED [None]
  - HEMIPLEGIA [None]
  - SYSTEMIC LUPUS ERYTHEMATOSUS [None]
  - TRANSIENT ISCHAEMIC ATTACK [None]
  - TYMPANIC MEMBRANE PERFORATION [None]
